FAERS Safety Report 9149385 (Version 1)
Quarter: 2013Q1

REPORT INFORMATION
  Report Type: Spontaneous
  Country: US (occurrence: US)
  Receive Date: 20130308
  Receipt Date: 20130308
  Transmission Date: 20140127
  Serious: Yes (Hospitalization)
  Sender: FDA-Public Use
  Company Number: US-ENDO PHARMACEUTICALS INC.-OPCR20120084

PATIENT
  Sex: Female

DRUGS (2)
  1. OPANA ER [Suspect]
     Indication: PAIN
     Route: 065
     Dates: start: 20120328
  2. OPANA ER [Suspect]
     Route: 065
     Dates: start: 2012

REACTIONS (2)
  - Pruritus generalised [Unknown]
  - Drug effect delayed [Unknown]
